FAERS Safety Report 7707875-9 (Version None)
Quarter: 2011Q3

REPORT INFORMATION
  Report Type: 
  Country: None (occurrence: None)
  Receive Date: 20110824
  Receipt Date: 20110810
  Transmission Date: 20111222
  Serious: Yes (Other)
  Sender: FDA-Public Use
  Company Number: US-ELI_LILLY_AND_COMPANY-US201105008363

PATIENT
  Sex: Female

DRUGS (5)
  1. KEPPRA [Concomitant]
     Dosage: 500 MG, BID
  2. PLAVIX [Concomitant]
  3. FORTEO [Suspect]
     Indication: OSTEOPOROSIS
     Dosage: 20 UG, QD
     Dates: start: 20090816
  4. FORTEO [Suspect]
     Dosage: 20 UG, QD
     Dates: end: 20110725
  5. ASPIRIN [Concomitant]

REACTIONS (3)
  - INTRACRANIAL ANEURYSM [None]
  - LOSS OF CONSCIOUSNESS [None]
  - DRUG DOSE OMISSION [None]
